FAERS Safety Report 9383980 (Version 1)
Quarter: 2013Q3

REPORT INFORMATION
  Report Type: Spontaneous
  Country: BR (occurrence: BR)
  Receive Date: 20130705
  Receipt Date: 20130705
  Transmission Date: 20140515
  Serious: Yes (Other)
  Sender: FDA-Public Use
  Company Number: BR-AMGEN-BRASP2013046365

PATIENT
  Age: 67 Year
  Sex: Female
  Weight: 44 kg

DRUGS (4)
  1. ENBREL [Suspect]
     Indication: RHEUMATOID ARTHRITIS
     Dosage: 50 MG, 1X/WEEK
     Route: 065
     Dates: end: 201306
  2. ENBREL [Suspect]
     Dosage: UNK
     Dates: end: 201306
  3. METHOTREXATE [Concomitant]
     Dosage: UNK, 1X/WEEK
  4. ARAVA [Concomitant]
     Dosage: 1 TABLET PER DAY

REACTIONS (2)
  - Toothache [Unknown]
  - Tooth infection [Not Recovered/Not Resolved]
